FAERS Safety Report 6057624-8 (Version None)
Quarter: 2009Q1

REPORT INFORMATION
  Report Type: 
  Country: None (occurrence: None)
  Receive Date: 20090127
  Receipt Date: 20090127
  Transmission Date: 20090719
  Serious: Yes (Other)
  Sender: FDA-Public Use
  Company Number: None

PATIENT
  Sex: Female

DRUGS (1)
  1. PENTAM [Suspect]
     Dosage: IV DRIP
     Route: 041

REACTIONS (3)
  - COUGH [None]
  - NAUSEA [None]
  - VOMITING [None]
